FAERS Safety Report 19199973 (Version 2)
Quarter: 2021Q3

REPORT INFORMATION
  Report Type: Spontaneous
  Country: US (occurrence: US)
  Receive Date: 20210429
  Receipt Date: 20210716
  Transmission Date: 20211014
  Serious: No
  Sender: FDA-Public Use
  Company Number: US-009507513-2104USA008194

PATIENT
  Sex: Female
  Weight: 57.6 kg

DRUGS (11)
  1. LENVATINIB MESYLATE [Suspect]
     Active Substance: LENVATINIB MESYLATE
     Dosage: 20 MG DAILY; STRENGTH: ^20 MG (2X10 MG) 5 DAY PK ? COMM^
     Route: 048
     Dates: start: 2021
  2. AMLODIPINE [Concomitant]
     Active Substance: AMLODIPINE BESYLATE
     Indication: BLOOD PRESSURE ABNORMAL
     Dosage: 2.5 MILLIGRAM, QD
  3. OMEPRAZOLE. [Concomitant]
     Active Substance: OMEPRAZOLE
  4. LENVATINIB MESYLATE [Suspect]
     Active Substance: LENVATINIB MESYLATE
     Indication: UTERINE CANCER
     Dosage: 20 MG DAILY; STRENGTH: ^20 MG (2X10 MG) 5 DAY PK ? COMM^
     Route: 048
     Dates: start: 20210318
  5. GAS?X [Concomitant]
     Active Substance: DIMETHICONE
  6. AMLODIPINE [Concomitant]
     Active Substance: AMLODIPINE BESYLATE
     Dosage: 5 MILLIGRAM, QD
  7. KEYTRUDA [Suspect]
     Active Substance: PEMBROLIZUMAB
  8. TYLENOL [Concomitant]
     Active Substance: ACETAMINOPHEN
  9. ONDANSETRON HCL [Concomitant]
     Active Substance: ONDANSETRON HYDROCHLORIDE
  10. NEULASTA [Concomitant]
     Active Substance: PEGFILGRASTIM
  11. COLACE [Concomitant]
     Active Substance: DOCUSATE SODIUM

REACTIONS (5)
  - Constipation [Unknown]
  - Abdominal pain [Unknown]
  - Nausea [Unknown]
  - Thyroid disorder [Unknown]
  - Therapy change [Unknown]

NARRATIVE: CASE EVENT DATE: 2021
